FAERS Safety Report 7486800-2 (Version None)
Quarter: 2011Q2

REPORT INFORMATION
  Report Type: 
  Country: None (occurrence: None)
  Receive Date: 20110517
  Receipt Date: 20110511
  Transmission Date: 20111010
  Serious: Yes (Hospitalization)
  Sender: FDA-Public Use
  Company Number: FR-PFIZER INC-2008011060

PATIENT
  Age: 73 Year
  Sex: Male

DRUGS (5)
  1. DILTIAZEM [Suspect]
     Indication: HYPERTENSION
     Route: 048
     Dates: start: 20071012, end: 20071101
  2. MIOREL [Suspect]
     Indication: SCIATICA
     Route: 048
     Dates: start: 20071012, end: 20071101
  3. PANTOPRAZOLE [Suspect]
     Route: 048
     Dates: start: 20071012, end: 20071018
  4. ACETAMINOPHEN W/ PROPOXYPHENE HCL [Suspect]
     Indication: SCIATICA
     Route: 048
     Dates: start: 20071012, end: 20071101
  5. PIROXICAM [Suspect]
     Indication: SCIATICA
     Route: 048
     Dates: start: 20071012, end: 20071018

REACTIONS (2)
  - CHOLESTASIS [None]
  - DRUG RASH WITH EOSINOPHILIA AND SYSTEMIC SYMPTOMS [None]
